FAERS Safety Report 5277654-3 (Version None)
Quarter: 2007Q1

REPORT INFORMATION
  Report Type: 
  Country: None (occurrence: None)
  Receive Date: 20070321
  Receipt Date: 20070130
  Transmission Date: 20070707
  Serious: Yes (Hospitalization)
  Sender: FDA-Public Use
  Company Number: 230796K07USA

PATIENT
  Age: 30 Year
  Sex: Female

DRUGS (1)
  1. REBIF [Suspect]
     Indication: MULTIPLE SCLEROSIS
     Dosage: 44 MCG, 3 IN 1 WEEKS, SUBCUTANEOUS
     Route: 058
     Dates: start: 20040702, end: 20061001

REACTIONS (7)
  - EYE DISORDER [None]
  - FALL [None]
  - GAIT DISTURBANCE [None]
  - MOVEMENT DISORDER [None]
  - PARAESTHESIA [None]
  - SENSORY LOSS [None]
  - VISION BLURRED [None]
